FAERS Safety Report 4559469-4 (Version None)
Quarter: 2005Q1

REPORT INFORMATION
  Report Type: 
  Country: None (occurrence: None)
  Receive Date: 20050119
  Receipt Date: 20050107
  Transmission Date: 20050727
  Serious: Yes (Hospitalization)
  Sender: FDA-Public Use
  Company Number: 032-0981-990014

PATIENT
  Age: 68 Year
  Sex: Male
  Weight: 79 kg

DRUGS (6)
  1. ATORVASTATIN            (ATORVASTATIN) [Suspect]
     Indication: CORONARY ARTERY DISEASE
     Dosage: 10 MG (DAILY), ORAL
     Route: 048
     Dates: start: 19980821, end: 19981014
  2. MOLSIDOMINE (MOLSIDOMINE) [Concomitant]
  3. ALTIZIDE (ALTIZIDE) [Concomitant]
  4. SPIRONOLACTONE [Concomitant]
  5. TICLOPIDINE (TICLOPIDINE) [Concomitant]
  6. BISOPROLOL FUMARATE [Concomitant]

REACTIONS (2)
  - DIABETES MELLITUS NON-INSULIN-DEPENDENT [None]
  - GOUT [None]
